FAERS Safety Report 10884722 (Version 1)
Quarter: 2015Q1

REPORT INFORMATION
  Report Type: Spontaneous
  Country: US (occurrence: None)
  Receive Date: 20150227
  Receipt Date: 20150227
  Transmission Date: 20150721
  Serious: Yes (Disabling, Other)
  Sender: FDA-Public Use
  Company Number: None

PATIENT
  Age: 29 Year
  Sex: Female
  Weight: 63.5 kg

DRUGS (1)
  1. MIRENA [Suspect]
     Active Substance: LEVONORGESTREL
     Indication: CONTRACEPTION
     Dates: start: 20120613, end: 20150108

REACTIONS (8)
  - Depression [None]
  - Libido decreased [None]
  - Neck pain [None]
  - Weight increased [None]
  - Mood swings [None]
  - Memory impairment [None]
  - Back pain [None]
  - Feeling abnormal [None]

NARRATIVE: CASE EVENT DATE: 20150108
